FAERS Safety Report 10493940 (Version 2)
Quarter: 2014Q4

REPORT INFORMATION
  Report Type: Report from Study
  Country: US (occurrence: US)
  Receive Date: 20141003
  Receipt Date: 20141010
  Transmission Date: 20150528
  Serious: Yes (Hospitalization)
  Sender: FDA-Public Use
  Company Number: US-BIOGENIDEC-2014BI101674

PATIENT
  Sex: Male

DRUGS (1)
  1. AVONEX [Suspect]
     Active Substance: INTERFERON BETA-1A
     Indication: MULTIPLE SCLEROSIS
     Route: 030
     Dates: start: 19990820, end: 20130302

REACTIONS (15)
  - Drug ineffective [Recovered/Resolved]
  - General symptom [Unknown]
  - Somnolence [Unknown]
  - Hypoaesthesia [Unknown]
  - Limb discomfort [Not Recovered/Not Resolved]
  - Asthenia [Unknown]
  - Fear [Unknown]
  - Temperature intolerance [Not Recovered/Not Resolved]
  - Malaise [Recovered/Resolved]
  - Anxiety [Unknown]
  - Sepsis [Unknown]
  - Multiple sclerosis [Not Recovered/Not Resolved]
  - Discomfort [Unknown]
  - Gait disturbance [Not Recovered/Not Resolved]
  - Fatigue [Unknown]
